FAERS Safety Report 6580265-0 (Version None)
Quarter: 2010Q1

REPORT INFORMATION
  Report Type: 
  Country: None (occurrence: None)
  Receive Date: 20100212
  Receipt Date: 20100112
  Transmission Date: 20100710
  Serious: No
  Sender: FDA-Public Use
  Company Number: US-BAYER-201011310NA

PATIENT
  Age: 82 Year
  Sex: Female
  Weight: 64 kg

DRUGS (4)
  1. CIPRO [Suspect]
     Indication: DIZZINESS
     Dosage: TOTAL DAILY DOSE: 1000 MG  UNIT DOSE: 500 MG
     Dates: start: 20100111
  2. GLIPIZIDE [Concomitant]
  3. METFORMIN HCL [Concomitant]
  4. JANUVIA [Concomitant]

REACTIONS (1)
  - DIZZINESS [None]
